FAERS Safety Report 24724897 (Version 1)
Quarter: 2024Q4

REPORT INFORMATION
  Report Type: Spontaneous
  Country: MA (occurrence: MA)
  Receive Date: 20241212
  Receipt Date: 20241212
  Transmission Date: 20250114
  Serious: Yes (Hospitalization, Other)
  Sender: AZURITY PHARMACEUTICALS
  Company Number: MA-AZURITY PHARMACEUTICALS, INC.-AZR202411-001215

PATIENT
  Age: 5 Year
  Sex: Female

DRUGS (1)
  1. AMPHETAMINE SULFATE [Suspect]
     Active Substance: AMPHETAMINE SULFATE
     Indication: Product used for unknown indication
     Dosage: 5 AMPHETAMINE TABLETS OF 5 MG (ASSUMED DOSE INGESTED: 25 MG) (1.4 MG/KG)
     Route: 048

REACTIONS (9)
  - Blood creatine phosphokinase increased [Recovering/Resolving]
  - Blood creatine phosphokinase MB increased [Recovering/Resolving]
  - Agitation [Recovering/Resolving]
  - Mydriasis [Recovering/Resolving]
  - Tachycardia [Recovering/Resolving]
  - Tachypnoea [Recovering/Resolving]
  - Toxicity to various agents [Recovering/Resolving]
  - Overdose [Unknown]
  - Accidental exposure to product by child [Unknown]
